FAERS Safety Report 9391476 (Version 2)
Quarter: 2013Q3

REPORT INFORMATION
  Report Type: Report from Study
  Country: GB (occurrence: GB)
  Receive Date: 20130709
  Receipt Date: 20130712
  Transmission Date: 20140515
  Serious: Yes (Hospitalization)
  Sender: FDA-Public Use
  Company Number: GB-GLAXOSMITHKLINE-B0891066B

PATIENT
  Age: 70 Year
  Sex: Female

DRUGS (3)
  1. OFATUMUMAB [Suspect]
     Indication: CHRONIC LYMPHOCYTIC LEUKAEMIA
     Dosage: 1000MG CYCLIC
     Route: 042
     Dates: start: 20130422
  2. CYCLOPHOSPHAMIDE [Suspect]
     Indication: CHRONIC LYMPHOCYTIC LEUKAEMIA
     Dosage: 250MG CYCLIC
     Route: 048
     Dates: start: 20130422
  3. FLUDARABINE [Suspect]
     Indication: CHRONIC LYMPHOCYTIC LEUKAEMIA
     Dosage: 40MG CYCLIC
     Route: 048
     Dates: start: 20130422

REACTIONS (1)
  - Neutropenic sepsis [Recovered/Resolved]
